FAERS Safety Report 7141256-4 (Version None)
Quarter: 2010Q4

REPORT INFORMATION
  Report Type: 
  Country: None (occurrence: None)
  Receive Date: 20101207
  Receipt Date: 20101123
  Transmission Date: 20110411
  Serious: Yes (Hospitalization)
  Sender: FDA-Public Use
  Company Number: FR-PFIZER INC-2010156010

PATIENT

DRUGS (1)
  1. RHINADVIL [Suspect]
     Indication: ACCIDENTAL EXPOSURE
     Dosage: UNK

REACTIONS (4)
  - ACCIDENTAL DRUG INTAKE BY CHILD [None]
  - ACCIDENTAL OVERDOSE [None]
  - DIZZINESS [None]
  - VOMITING [None]
